FAERS Safety Report 12448627 (Version 1)
Quarter: 2016Q2

REPORT INFORMATION
  Report Type: Spontaneous
  Country: FR (occurrence: FR)
  Receive Date: 20160608
  Receipt Date: 20160608
  Transmission Date: 20160815
  Serious: Yes (Hospitalization)
  Sender: FDA-Public Use
  Company Number: FR-JNJFOC-20160602801

PATIENT
  Age: 92 Year
  Sex: Female

DRUGS (9)
  1. KEPPRA [Suspect]
     Active Substance: LEVETIRACETAM
     Indication: ACCIDENTAL EXPOSURE TO PRODUCT
     Route: 048
     Dates: start: 20151116, end: 20151116
  2. RISPERDAL [Suspect]
     Active Substance: RISPERIDONE
     Indication: ACCIDENTAL EXPOSURE TO PRODUCT
     Route: 048
     Dates: start: 20151116, end: 20151116
  3. MIANSERINE [Suspect]
     Active Substance: MIANSERIN HYDROCHLORIDE
     Indication: ACCIDENTAL EXPOSURE TO PRODUCT
     Route: 048
     Dates: start: 20151116, end: 20151116
  4. ZOPICLONE [Concomitant]
     Active Substance: ZOPICLONE
     Dosage: INTRODUCED A LONG TIME AGO
     Route: 048
  5. SERESTA [Concomitant]
     Active Substance: OXAZEPAM
     Dosage: INTRODUCED A LONG TIME AGO
     Route: 048
  6. DIGOXINE [Concomitant]
     Active Substance: DIGOXIN
     Dosage: INTRODUCED A LONG TIME AGO
     Route: 048
  7. MODOPAR [Suspect]
     Active Substance: BENSERAZIDE HYDROCHLORIDE\LEVODOPA
     Indication: ACCIDENTAL EXPOSURE TO PRODUCT
     Dosage: (50MG/12.5 MG)
     Route: 048
     Dates: start: 20151116, end: 20151116
  8. MOVICOL [Concomitant]
     Active Substance: POLYETHYLENE GLYCOL 3350\POTASSIUM CHLORIDE\SODIUM BICARBONATE\SODIUM CHLORIDE
     Dosage: INTRODUCED A LONG TIME AGO
     Route: 048
  9. ACIDE FOLIQUE [Concomitant]
     Active Substance: FOLIC ACID
     Dosage: INTRODUCED A LONG TIME AGO
     Route: 048

REACTIONS (5)
  - Medication error [Recovered/Resolved]
  - Hypothermia [Recovered/Resolved]
  - Oxygen saturation decreased [Recovered/Resolved]
  - Tachycardia [Recovered/Resolved]
  - Somnolence [Recovered/Resolved]

NARRATIVE: CASE EVENT DATE: 20151116
